FAERS Safety Report 4850813-7 (Version None)
Quarter: 2005Q4

REPORT INFORMATION
  Report Type: 
  Country: None (occurrence: None)
  Receive Date: 20051208
  Receipt Date: 20051124
  Transmission Date: 20060501
  Serious: Yes (Hospitalization)
  Sender: FDA-Public Use
  Company Number: SUSI-2005-00856

PATIENT
  Age: 49 Year
  Sex: Male

DRUGS (2)
  1. PENTASA [Suspect]
     Indication: COLITIS ULCERATIVE
     Dosage: 1000 MG, 3X/DAY TID; ORAL, 1000 MG, 3X/DAY TID; ORAL
     Route: 048
     Dates: start: 20020101, end: 20020901
  2. PENTASA [Suspect]
     Indication: COLITIS ULCERATIVE
     Dosage: 1000 MG, 3X/DAY TID; ORAL, 1000 MG, 3X/DAY TID; ORAL
     Route: 048
     Dates: start: 20031201, end: 20051116

REACTIONS (1)
  - INTERSTITIAL LUNG DISEASE [None]
